FAERS Safety Report 8492409-4 (Version None)
Quarter: 2012Q3

REPORT INFORMATION
  Report Type: 
  Country: None (occurrence: None)
  Receive Date: 20120706
  Receipt Date: 20120627
  Transmission Date: 20120928
  Serious: Yes (Hospitalization)
  Sender: FDA-Public Use
  Company Number: CA-ROCHE-1023801

PATIENT
  Sex: Female

DRUGS (1)
  1. XOLAIR [Suspect]
     Indication: ASTHMA
     Route: 058
     Dates: start: 20060215

REACTIONS (9)
  - MALAISE [None]
  - CHEST DISCOMFORT [None]
  - RALES [None]
  - PNEUMONIA [None]
  - RESPIRATORY TRACT CONGESTION [None]
  - LETHARGY [None]
  - ASTHMA [None]
  - ASTHENIA [None]
  - WHEEZING [None]
